FAERS Safety Report 17850010 (Version 1)
Quarter: 2020Q2

REPORT INFORMATION
  Report Type: Spontaneous
  Country: GB (occurrence: GB)
  Receive Date: 20200602
  Receipt Date: 20200602
  Transmission Date: 20200714
  Serious: Yes (Other)
  Sender: FDA-Public Use
  Company Number: GB-ACCORD-183808

PATIENT
  Age: 74 Year
  Sex: Male
  Weight: 84 kg

DRUGS (11)
  1. FINASTERIDE. [Concomitant]
     Active Substance: FINASTERIDE
     Dates: start: 20190628
  2. RAMIPRIL. [Suspect]
     Active Substance: RAMIPRIL
     Indication: PRODUCT USED FOR UNKNOWN INDICATION
     Dates: start: 20200220
  3. LANSOPRAZOLE. [Concomitant]
     Active Substance: LANSOPRAZOLE
     Dates: start: 20191104
  4. AMOROLFINE/AMOROLFINE HYDROCHLORIDE [Concomitant]
     Active Substance: AMOROLFINE HYDROCHLORIDE
     Indication: NAIL DISORDER
     Dosage: AS DIRECTED TO AFFECTED NAILS
     Dates: start: 20190628
  5. DOXAZOSIN [Concomitant]
     Active Substance: DOXAZOSIN MESYLATE
     Dates: start: 20190628, end: 20200515
  6. BECLOMETASONE [Concomitant]
     Active Substance: BECLOMETHASONE DIPROPIONATE
     Dates: start: 20190628
  7. AMLODIPINE [Concomitant]
     Active Substance: AMLODIPINE BESYLATE
     Dates: start: 20190628
  8. DERMOVATE [Concomitant]
     Active Substance: CLOBETASOL
     Indication: SKIN DISORDER
     Dosage: FOR 15 DAYS, WHEN LEGS FLARE UP
     Dates: start: 20190628
  9. ATORVASTATIN [Concomitant]
     Active Substance: ATORVASTATIN
     Dates: start: 20190628
  10. ZEROBASE [Concomitant]
     Active Substance: MINERAL OIL\PARAFFIN
     Dosage: USE FREQUENTLY AS DIRECTED
     Dates: start: 20190628
  11. WARFARIN [Concomitant]
     Active Substance: WARFARIN
     Dosage: AS DIRECTED ACCORDING TO ANTICOAGULATION BOOK
     Dates: start: 20190628

REACTIONS (3)
  - Oropharyngeal pain [Unknown]
  - Lip swelling [Recovering/Resolving]
  - Dry throat [Recovering/Resolving]

NARRATIVE: CASE EVENT DATE: 20200518
